FAERS Safety Report 19945400 (Version 3)
Quarter: 2024Q1

REPORT INFORMATION
  Report Type: Spontaneous
  Country: US (occurrence: US)
  Receive Date: 20211012
  Receipt Date: 20240129
  Transmission Date: 20240410
  Serious: Yes (Hospitalization, Disabling, Other)
  Sender: FDA-Public Use
  Company Number: US-ORGANON-O2110USA000723

PATIENT
  Sex: Female

DRUGS (2)
  1. SINGULAIR [Suspect]
     Active Substance: MONTELUKAST SODIUM
     Indication: Asthma
     Dosage: TAKE 1 TABLET BY ORAL ROUTE EVERY DAY IN THE EVENING
     Route: 048
     Dates: start: 2004, end: 2020
  2. TYLENOL WITH CODEINE [Suspect]
     Active Substance: ACETAMINOPHEN\CODEINE PHOSPHATE
     Dosage: 300 MG OF TYLENOL. AND 30 MG OF CODEINE COMPONENT.

REACTIONS (12)
  - Suicidal ideation [Recovered/Resolved]
  - Neuropsychological symptoms [Not Recovered/Not Resolved]
  - Bipolar disorder [Recovered/Resolved]
  - Suicide attempt [Unknown]
  - Suicide attempt [Unknown]
  - Depression [Not Recovered/Not Resolved]
  - Overdose [Unknown]
  - Nausea [Not Recovered/Not Resolved]
  - Dysphemia [Recovered/Resolved]
  - Anxiety [Unknown]
  - Affective disorder [Recovering/Resolving]
  - Emotional disorder [Unknown]

NARRATIVE: CASE EVENT DATE: 20090101
